FAERS Safety Report 12370928 (Version 2)
Quarter: 2016Q2

REPORT INFORMATION
  Report Type: Report from Study
  Country: US (occurrence: US)
  Receive Date: 20160516
  Receipt Date: 20160615
  Transmission Date: 20160815
  Serious: No
  Sender: FDA-Public Use
  Company Number: US-AMGEN-USASP2016059463

PATIENT
  Age: 66 Year
  Sex: Female

DRUGS (2)
  1. PREDNISONE. [Concomitant]
     Active Substance: PREDNISONE
     Dosage: UNK
     Dates: start: 2016, end: 2016
  2. ENBREL [Suspect]
     Active Substance: ETANERCEPT
     Indication: PRODUCT USED FOR UNKNOWN INDICATION
     Dosage: UNK
     Route: 065
     Dates: start: 201604

REACTIONS (8)
  - Drug effect delayed [Unknown]
  - Dry mouth [Unknown]
  - Pain [Unknown]
  - Insomnia [Unknown]
  - Drug dose omission [Unknown]
  - Musculoskeletal stiffness [Unknown]
  - Decreased appetite [Unknown]
  - Oral candidiasis [Unknown]

NARRATIVE: CASE EVENT DATE: 2016
